FAERS Safety Report 25739242 (Version 3)
Quarter: 2025Q4

REPORT INFORMATION
  Report Type: Spontaneous
  Country: EU (occurrence: EU)
  Receive Date: 20250829
  Receipt Date: 20251021
  Transmission Date: 20260117
  Serious: Yes (Death, Life-Threatening, Other)
  Sender: BRISTOL-MYERS SQUIBB COMPANY
  Company Number: None

PATIENT
  Age: 65 Year
  Sex: Male
  Weight: 100 kg

DRUGS (9)
  1. ORENCIA [Suspect]
     Active Substance: ABATACEPT
     Indication: Rheumatoid arthritis
     Dosage: 1 SHOT PER WEEK
     Dates: start: 20250515, end: 20250822
  2. METHOTREXATE SODIUM [Concomitant]
     Active Substance: METHOTREXATE SODIUM
     Indication: Rheumatic disorder
     Dosage: FOR MANY YEARS
     Dates: start: 202505
  3. OFEV [Concomitant]
     Active Substance: NINTEDANIB
     Indication: Fibrosis
     Dates: start: 202505
  4. FOLIC ACID [Concomitant]
     Active Substance: FOLIC ACID
     Indication: Product used for unknown indication
     Dates: start: 20050225
  5. PREDNISOLONE [Concomitant]
     Active Substance: PREDNISOLONE
     Indication: Product used for unknown indication
     Dosage: 1-0-0
  6. Vitamin D 3 1000 [Concomitant]
     Indication: Product used for unknown indication
     Dosage: 1-0-0
  7. PANTOPRAZOLE [Concomitant]
     Active Substance: PANTOPRAZOLE
     Indication: Product used for unknown indication
     Dosage: 1-0-0
  8. CORTISONE [Concomitant]
     Active Substance: CORTISONE
     Indication: Rheumatic disorder
  9. Etricoxib 120 [Concomitant]
     Indication: Pain
     Dosage: ONLY WHEN NEEDED

REACTIONS (1)
  - Pneumocystis jirovecii pneumonia [Fatal]

NARRATIVE: CASE EVENT DATE: 20250731
